FAERS Safety Report 5105987-X (Version None)
Quarter: 2006Q3

REPORT INFORMATION
  Report Type: 
  Country: None (occurrence: None)
  Receive Date: 20060912
  Receipt Date: 20060830
  Transmission Date: 20061208
  Serious: Yes (Other)
  Sender: FDA-Public Use
  Company Number: 2006106834

PATIENT
  Age: 51 Year
  Sex: Female
  Weight: 81.6475 kg

DRUGS (9)
  1. LYRICA [Suspect]
     Indication: NEURALGIA
     Dosage: 150 MG (75 MG, 2 IN 1 D)
     Dates: start: 20060101, end: 20060101
  2. URECHOLINE [Concomitant]
  3. DITROPAN [Concomitant]
  4. TAMSULOSIN HCL [Concomitant]
  5. SYNTHROID [Concomitant]
  6. FLEXERIL [Concomitant]
  7. PAXIL [Concomitant]
  8. LIMBITROL (AMITRIPTYLINE HYDROCHLORIDE, CHLORDIAZEPOXIDE) [Concomitant]
  9. XANAX [Concomitant]

REACTIONS (7)
  - BLISTER [None]
  - INCORRECT DOSE ADMINISTERED [None]
  - PAIN [None]
  - SCAR [None]
  - TREATMENT NONCOMPLIANCE [None]
  - ULCER [None]
  - UNDERDOSE [None]
